FAERS Safety Report 7741556-0 (Version None)
Quarter: 2011Q3

REPORT INFORMATION
  Report Type: 
  Country: None (occurrence: None)
  Receive Date: 20110909
  Receipt Date: 20110831
  Transmission Date: 20111222
  Serious: Yes (Hospitalization, Other)
  Sender: FDA-Public Use
  Company Number: US-ASTRAZENECA-2009UW15489

PATIENT
  Age: 25397 Day
  Sex: Female
  Weight: 134.3 kg

DRUGS (8)
  1. BENICAR WITH HCTZ [Concomitant]
     Indication: BLOOD PRESSURE
     Dosage: 40/25MG 1 TABLET DAILY
     Route: 048
  2. LEVOTHYROXINE SODIUM [Concomitant]
     Indication: THYROID DISORDER
     Route: 048
  3. POTASSIUM CHLORIDE [Concomitant]
     Indication: ELECTROLYTE SUBSTITUTION THERAPY
     Route: 048
  4. FUROSEMIDE [Concomitant]
  5. CRESTOR [Suspect]
     Route: 048
  6. ASPIRIN [Concomitant]
     Route: 048
  7. TOPROL-XL [Suspect]
     Route: 048
  8. PROTONIX [Concomitant]
     Route: 048

REACTIONS (25)
  - CEREBROVASCULAR DISORDER [None]
  - ANGINA PECTORIS [None]
  - HYPOTHYROIDISM [None]
  - FIBROMYALGIA [None]
  - CEREBRAL ARTERIOSCLEROSIS [None]
  - INTERVERTEBRAL DISC DEGENERATION [None]
  - GASTROOESOPHAGEAL REFLUX DISEASE [None]
  - HYPERLIPIDAEMIA [None]
  - TRICUSPID VALVE INCOMPETENCE [None]
  - LICHEN SCLEROSUS [None]
  - PAIN IN EXTREMITY [None]
  - PULMONARY HYPERTENSION [None]
  - FLUSHING [None]
  - ERUCTATION [None]
  - UTERINE LEIOMYOMA [None]
  - HYPERTENSION [None]
  - ABDOMINAL DISTENSION [None]
  - MITRAL VALVE INCOMPETENCE [None]
  - COUGH [None]
  - SLEEP APNOEA SYNDROME [None]
  - ESSENTIAL HYPERTENSION [None]
  - EPISTAXIS [None]
  - ENDOMETRIOSIS [None]
  - DIZZINESS [None]
  - FATIGUE [None]
